FAERS Safety Report 9516239 (Version 1)
Quarter: 2013Q3

REPORT INFORMATION
  Report Type: Spontaneous
  Country: DE (occurrence: DE)
  Receive Date: 20130911
  Receipt Date: 20130911
  Transmission Date: 20140515
  Serious: Yes (Other)
  Sender: FDA-Public Use
  Company Number: GXKR2013DE002981

PATIENT
  Sex: Female

DRUGS (3)
  1. PAROXAT [Suspect]
     Indication: DEPRESSION
     Dosage: 20 MG, QD
     Route: 048
     Dates: start: 2004
  2. PAROXAT [Suspect]
     Indication: ANXIETY
  3. PAROXAT [Suspect]
     Indication: PANIC ATTACK

REACTIONS (1)
  - Breast cancer [Unknown]
